FAERS Safety Report 11598266 (Version 1)
Quarter: 2015Q4

REPORT INFORMATION
  Report Type: Spontaneous
  Country: US (occurrence: US)
  Receive Date: 20151006
  Receipt Date: 20151006
  Transmission Date: 20160304
  Serious: Yes (Hospitalization, Other)
  Sender: FDA-Public Use
  Company Number: US-DSJP-DSU-2015-119327

PATIENT

DRUGS (5)
  1. CELEBREX [Concomitant]
     Active Substance: CELECOXIB
     Indication: PRODUCT USED FOR UNKNOWN INDICATION
     Dosage: UNK
     Dates: start: 20120601, end: 20120611
  2. BENICAR [Suspect]
     Active Substance: OLMESARTAN MEDOXOMIL
     Indication: HYPERTENSION
     Dosage: 20 MG, QD
     Route: 048
     Dates: start: 20100427, end: 20111028
  3. BENICAR [Suspect]
     Active Substance: OLMESARTAN MEDOXOMIL
     Dosage: 10 MG, QD
     Route: 048
     Dates: start: 2011
  4. BENICAR [Suspect]
     Active Substance: OLMESARTAN MEDOXOMIL
     Dosage: 40 MG, QD
     Route: 048
     Dates: start: 20100526, end: 20120623
  5. BENICAR HCT [Suspect]
     Active Substance: HYDROCHLOROTHIAZIDE\OLMESARTAN MEDOXOMIL
     Indication: HYPERTENSION
     Dosage: 20/12.5 MG, QD
     Route: 048
     Dates: start: 20070719

REACTIONS (31)
  - Malabsorption [Not Recovered/Not Resolved]
  - Autoimmune colitis [Unknown]
  - Malnutrition [Unknown]
  - Arthritis [Unknown]
  - Inflammatory bowel disease [Unknown]
  - Dizziness [Unknown]
  - Hypoglycaemia [Unknown]
  - Rash [Recovered/Resolved]
  - Hypokalaemia [Unknown]
  - Electrolyte imbalance [Unknown]
  - Chronic gastritis [Unknown]
  - Hypomagnesaemia [Unknown]
  - Oesophageal candidiasis [Unknown]
  - Deep vein thrombosis [Recovered/Resolved]
  - Pyrexia [Recovered/Resolved]
  - Diverticulitis [Unknown]
  - Pancreatic insufficiency [Unknown]
  - Blood immunoglobulin G decreased [Unknown]
  - Coeliac disease [Unknown]
  - Gastrooesophageal reflux disease [Unknown]
  - Enteritis [Unknown]
  - Gastrointestinal disorder [Unknown]
  - Hypotension [Unknown]
  - Haemorrhoidal haemorrhage [Unknown]
  - Hiatus hernia [Unknown]
  - Enteritis [Unknown]
  - Haemorrhoids [Unknown]
  - Pancreatic duct dilatation [Unknown]
  - Malaise [Unknown]
  - Constipation [Unknown]
  - Diverticulum [Unknown]

NARRATIVE: CASE EVENT DATE: 201106
